FAERS Safety Report 4287356-8 (Version None)
Quarter: 2004Q1

REPORT INFORMATION
  Report Type: 
  Country: None (occurrence: None)
  Receive Date: 20040209
  Receipt Date: 20030604
  Transmission Date: 20041129
  Serious: No
  Sender: FDA-Public Use
  Company Number: US-GLAXOSMITHKLINE-A0410829A

PATIENT
  Age: 38 Year
  Sex: Female

DRUGS (1)
  1. PAXIL CR [Suspect]
     Indication: DEPRESSION
     Route: 048
     Dates: start: 20030417

REACTIONS (10)
  - ABDOMINAL DISTENSION [None]
  - ANORGASMIA [None]
  - APATHY [None]
  - DRUG INEFFECTIVE [None]
  - FATIGUE [None]
  - FLATULENCE [None]
  - HEADACHE [None]
  - SLUGGISHNESS [None]
  - URINARY RETENTION [None]
  - WEIGHT INCREASED [None]
